FAERS Safety Report 4794272-1 (Version None)
Quarter: 2005Q4

REPORT INFORMATION
  Report Type: 
  Country: None (occurrence: None)
  Receive Date: 20051011
  Receipt Date: 20050808
  Transmission Date: 20060501
  Serious: Yes (Other)
  Sender: FDA-Public Use
  Company Number: 200502671

PATIENT
  Age: 65 Year
  Sex: Female

DRUGS (4)
  1. TAGAMET [Suspect]
     Indication: DUODENAL ULCER
     Dosage: 20MG UNKNOWN
     Route: 065
     Dates: start: 20030325, end: 20050615
  2. MUCOSTA [Concomitant]
     Indication: DRUG USE FOR UNKNOWN INDICATION
  3. DIOVAN [Concomitant]
     Indication: DRUG USE FOR UNKNOWN INDICATION
  4. AMARYL [Concomitant]
     Indication: DRUG USE FOR UNKNOWN INDICATION

REACTIONS (1)
  - PARKINSONISM [None]
